FAERS Safety Report 5958013-4 (Version None)
Quarter: 2008Q4

REPORT INFORMATION
  Report Type: 
  Country: None (occurrence: None)
  Receive Date: 20081119
  Receipt Date: 20081110
  Transmission Date: 20090506
  Serious: Yes (Hospitalization)
  Sender: FDA-Public Use
  Company Number: PHHY2008DE28287

PATIENT
  Sex: Male

DRUGS (8)
  1. TRILEPTAL [Suspect]
     Indication: EPILEPSY
     Dosage: 900 MG, QD
     Route: 048
     Dates: end: 20080627
  2. TRILEPTAL [Suspect]
     Dosage: 1050 MG, QD
     Dates: start: 20080628
  3. DELIX [Suspect]
     Dosage: 10 MG/D
     Route: 048
  4. ESIDRIX [Suspect]
     Dosage: 25 MG/D
     Route: 048
  5. TAXILAN [Suspect]
     Dosage: 100 MG/D
     Route: 048
     Dates: start: 20080628
  6. BELOC ZOK [Concomitant]
     Dosage: 47.5 MG/D
     Route: 048
  7. MIRTAZAPINE [Concomitant]
     Dosage: 30 MG/DAY
     Route: 048
     Dates: start: 20080627, end: 20080702
  8. NORVASC [Concomitant]
     Dosage: 10 MG/D
     Route: 048

REACTIONS (5)
  - CONVULSION [None]
  - DRUG INTERACTION [None]
  - HYPONATRAEMIA [None]
  - LOSS OF CONSCIOUSNESS [None]
  - RESPIRATORY FAILURE [None]
